FAERS Safety Report 5742227-2 (Version None)
Quarter: 2008Q2

REPORT INFORMATION
  Report Type: 
  Country: None (occurrence: None)
  Receive Date: 20080519
  Receipt Date: 20080514
  Transmission Date: 20081010
  Serious: Yes (Death, Hospitalization)
  Sender: FDA-Public Use
  Company Number: PHNU2008DE00523

PATIENT
  Age: 21 Year
  Sex: Female
  Weight: 40 kg

DRUGS (33)
  1. ANTIBIOTICS [Suspect]
  2. SANDIMMUNE [Suspect]
     Indication: LUNG TRANSPLANT
     Dosage: 25 MG DAILY
     Route: 042
     Dates: start: 20061102, end: 20061104
  3. CELLCEPT [Concomitant]
     Indication: LUNG TRANSPLANT
     Dates: start: 20071101
  4. PREDNISOLON [Concomitant]
     Indication: LUNG TRANSPLANT
     Dosage: 25 MG DAILY
     Route: 042
     Dates: start: 20061102
  5. CYTOMEGALOVIRUS IMMUNE GLOBULIN [Concomitant]
     Dates: start: 20061102
  6. COLISTIN SULFATE [Concomitant]
     Dates: start: 20061103
  7. JONOSTERIL [Concomitant]
     Dates: start: 20061102
  8. GELAFUSAL-N IN RINGERACETAT [Concomitant]
     Dates: start: 20061102
  9. CALCIUM [Concomitant]
     Dates: start: 20061102
  10. DESMOPRESSIN ACETATE [Concomitant]
     Dates: start: 20061102
  11. METOPROLOL TARTRATE [Concomitant]
     Dates: start: 20061103
  12. NADROPARIN [Concomitant]
     Dates: start: 20061103
  13. XIPAMIDE [Concomitant]
  14. PROPOFOL [Suspect]
     Indication: SEDATION
     Dosage: 200 MG/H, UNK
     Route: 042
     Dates: start: 20061102, end: 20061104
  15. CEFTAZIDIME [Concomitant]
     Dosage: 2 G, TID
     Route: 042
     Dates: start: 20061102
  16. TOBRAMYCIN [Interacting]
     Dosage: 160 MG DAILY
     Route: 042
     Dates: start: 20061102, end: 20061104
  17. FLOXACILLIN SODIUM [Concomitant]
     Dosage: 2 G, TID
     Route: 042
     Dates: start: 20061102
  18. NOREPINEPHRINE [Concomitant]
     Dates: start: 20061102
  19. NITROGLYCERIN [Concomitant]
     Dates: start: 20061102
  20. MILRINONE LACTATE [Concomitant]
     Dates: start: 20061102
  21. ELECTROLYTES NOS [Concomitant]
     Dates: start: 20061102
  22. FRESH FROZEN PLASMA [Concomitant]
     Dates: start: 20061102
  23. INSULIN [Concomitant]
     Dates: start: 20061102
  24. POTASSIUM CHLORIDE [Concomitant]
     Dates: start: 20061102
  25. APROTININ [Concomitant]
     Dates: start: 20061102
  26. FUROSEMIDE [Concomitant]
     Dates: start: 20061104
  27. MYCOPHENOLATE MOFETIL [Concomitant]
     Dates: start: 20061103
  28. HEPARIN [Concomitant]
     Dates: start: 20061105
  29. TRIS [Concomitant]
     Dates: start: 20061106
  30. SODIUM CHLORIDE [Concomitant]
     Dates: start: 20061104
  31. GLUCOSE [Concomitant]
     Dates: start: 20061106
  32. MAGNESIUM SULFATE [Concomitant]
     Dates: start: 20061106
  33. VITAMINS NOS [Concomitant]
     Dates: start: 20061106

REACTIONS (12)
  - BLOOD CREATINE PHOSPHOKINASE INCREASED [None]
  - CARDIAC FAILURE [None]
  - DIALYSIS [None]
  - DRUG INTERACTION [None]
  - MYOGLOBIN BLOOD INCREASED [None]
  - POST PROCEDURAL HAEMORRHAGE [None]
  - PULMONARY HAEMORRHAGE [None]
  - RENAL FAILURE [None]
  - RHABDOMYOLYSIS [None]
  - THORACOTOMY [None]
  - TOXIC EPIDERMAL NECROLYSIS [None]
  - TROPONIN I INCREASED [None]
